FAERS Safety Report 10592953 (Version 1)
Quarter: 2014Q4

REPORT INFORMATION
  Report Type: Spontaneous
  Country: US (occurrence: None)
  Receive Date: 20141118
  Receipt Date: 20141118
  Transmission Date: 20150529
  Serious: Yes (Disabling)
  Sender: FDA-Public Use
  Company Number: None

PATIENT
  Age: 63 Year
  Sex: Male
  Weight: 112.04 kg

DRUGS (1)
  1. XARELTO [Suspect]
     Active Substance: RIVAROXABAN
     Indication: COAGULOPATHY
     Dosage: 1 PILL ONCE DAILY TAKEN BY MOUTH

REACTIONS (8)
  - Headache [None]
  - Muscular weakness [None]
  - Abdominal discomfort [None]
  - Insomnia [None]
  - Early satiety [None]
  - Fatigue [None]
  - Depression [None]
  - Mobility decreased [None]

NARRATIVE: CASE EVENT DATE: 20141001
